FAERS Safety Report 14616409 (Version 1)
Quarter: 2018Q1

REPORT INFORMATION
  Report Type: Spontaneous
  Country: PT (occurrence: PT)
  Receive Date: 20180309
  Receipt Date: 20180309
  Transmission Date: 20180509
  Serious: Yes (Other)
  Sender: FDA-Public Use
  Company Number: PT-ROCHE-2087382

PATIENT
  Sex: Male

DRUGS (1)
  1. MABTHERA [Suspect]
     Active Substance: RITUXIMAB
     Indication: PRODUCT USED FOR UNKNOWN INDICATION
     Route: 042
     Dates: start: 20180206, end: 20180206

REACTIONS (5)
  - Hypotension [Recovering/Resolving]
  - Pyrexia [Recovering/Resolving]
  - Hyperlactacidaemia [Recovering/Resolving]
  - Multiple organ dysfunction syndrome [Recovering/Resolving]
  - Shock [Recovering/Resolving]

NARRATIVE: CASE EVENT DATE: 20180206
